FAERS Safety Report 14625284 (Version 3)
Quarter: 2018Q2

REPORT INFORMATION
  Report Type: Spontaneous
  Country: JP (occurrence: JP)
  Receive Date: 20180312
  Receipt Date: 20180510
  Transmission Date: 20180711
  Serious: Yes (Life-Threatening, Hospitalization, Other)
  Sender: FDA-Public Use
  Company Number: JP-ASTELLAS-2018JP004285

PATIENT
  Age: 63 Year
  Sex: Female
  Weight: 32 kg

DRUGS (8)
  1. PROGRAF [Suspect]
     Active Substance: TACROLIMUS\TACROLIMUS ANHYDROUS
     Indication: HYPOGAMMAGLOBULINAEMIA
  2. VENOGLOBLIN-IH [Suspect]
     Active Substance: HUMAN IMMUNOGLOBULIN G
     Indication: SYSTEMIC LUPUS ERYTHEMATOSUS
     Route: 042
     Dates: start: 20161205, end: 20161207
  3. PROGRAF [Suspect]
     Active Substance: TACROLIMUS\TACROLIMUS ANHYDROUS
     Indication: SYSTEMIC LUPUS ERYTHEMATOSUS
     Dosage: 0.5 MG, ONCE DAILY
     Route: 048
     Dates: start: 20131218
  4. VICCLOX                            /00587302/ [Suspect]
     Active Substance: ACYCLOVIR SODIUM
     Route: 041
     Dates: start: 20161202, end: 20161205
  5. VICCLOX /00587302/ [Suspect]
     Active Substance: ACYCLOVIR SODIUM
     Indication: HERPES ZOSTER
     Dosage: UNK UNK, UNKNOWN FREQ.
     Route: 041
  6. ARASENA A [Suspect]
     Active Substance: VIDARABINE
     Indication: HERPES ZOSTER
     Route: 041
     Dates: start: 20161205, end: 20161209
  7. MEDROL [Suspect]
     Active Substance: METHYLPREDNISOLONE
     Indication: SYSTEMIC LUPUS ERYTHEMATOSUS
     Route: 048
  8. MEDROL [Suspect]
     Active Substance: METHYLPREDNISOLONE
     Indication: HYPOGAMMAGLOBULINAEMIA

REACTIONS (4)
  - Off label use [Unknown]
  - White blood cell count decreased [Unknown]
  - Posterior reversible encephalopathy syndrome [Not Recovered/Not Resolved]
  - Herpes zoster [Recovering/Resolving]

NARRATIVE: CASE EVENT DATE: 20131218
